FAERS Safety Report 15628515 (Version 1)
Quarter: 2018Q4

REPORT INFORMATION
  Report Type: Report from Study
  Country: US (occurrence: US)
  Receive Date: 20181116
  Receipt Date: 20181116
  Transmission Date: 20190205
  Serious: No
  Sender: FDA-Public Use
  Company Number: PHEH2018US048340

PATIENT
  Sex: Female
  Weight: 92.9 kg

DRUGS (2)
  1. GLATOPA [Suspect]
     Active Substance: GLATIRAMER ACETATE
     Indication: MULTIPLE SCLEROSIS
     Dosage: 3 DF (40 MG), QW
     Route: 058
     Dates: start: 20180718
  2. GLATOPA [Suspect]
     Active Substance: GLATIRAMER ACETATE
     Dosage: 20 MG, QD
     Route: 058
     Dates: end: 20181029

REACTIONS (3)
  - Urticaria [Unknown]
  - Pain [Unknown]
  - Injection site swelling [Recovering/Resolving]
